FAERS Safety Report 9365527 (Version 1)
Quarter: 2013Q2

REPORT INFORMATION
  Report Type: Spontaneous
  Country: US (occurrence: US)
  Receive Date: 20130625
  Receipt Date: 20130625
  Transmission Date: 20140414
  Serious: No
  Sender: FDA-Public Use
  Company Number: US-BIOGENIDEC-2013BI055217

PATIENT
  Age: 49 Year
  Sex: Male

DRUGS (2)
  1. TYSABRI [Suspect]
     Indication: MULTIPLE SCLEROSIS
     Route: 042
     Dates: start: 20110823
  2. AVONEX [Concomitant]
     Indication: MULTIPLE SCLEROSIS
     Route: 030

REACTIONS (6)
  - Pain [Unknown]
  - Hemiplegia [Not Recovered/Not Resolved]
  - Hypoaesthesia [Recovered/Resolved]
  - Paraesthesia [Unknown]
  - Pruritus [Unknown]
  - Dizziness [Unknown]
